FAERS Safety Report 5705116-5 (Version None)
Quarter: 2008Q2

REPORT INFORMATION
  Report Type: 
  Country: None (occurrence: None)
  Receive Date: 20080410
  Receipt Date: 20080402
  Transmission Date: 20081010
  Serious: Yes (Other)
  Sender: FDA-Public Use
  Company Number: 2008S1002677

PATIENT
  Age: 64 Year
  Sex: Male

DRUGS (4)
  1. PHOSPHOSODA GINGER LEMON [Suspect]
     Indication: COLONOSCOPY
     Dosage: 45 ML;X1;PO
     Route: 048
     Dates: start: 20080330, end: 20080330
  2. PREDNISONE [Concomitant]
  3. BENADRYL ^PARKE DAVIS^ [Concomitant]
  4. PEPCID [Concomitant]

REACTIONS (6)
  - BLOOD PRESSURE DECREASED [None]
  - DIZZINESS [None]
  - JOINT SWELLING [None]
  - LIP SWELLING [None]
  - PRURITUS [None]
  - URTICARIA [None]
